FAERS Safety Report 9109235 (Version 1)
Quarter: 2013Q1

REPORT INFORMATION
  Report Type: Spontaneous
  Country: US (occurrence: US)
  Receive Date: 20130222
  Receipt Date: 20130222
  Transmission Date: 20140127
  Serious: Yes (Hospitalization, Other)
  Sender: FDA-Public Use
  Company Number: US-ABBOTT-13P-163-1052890-00

PATIENT
  Sex: Male
  Weight: 118.04 kg

DRUGS (9)
  1. ANDROGEL 1.62% [Suspect]
     Indication: BLOOD TESTOSTERONE DECREASED
     Dosage: 2 PUMPS
     Route: 061
     Dates: start: 201109
  2. ANDROGEL 1% [Suspect]
     Indication: BLOOD TESTOSTERONE DECREASED
     Dosage: UNKNOWN
     Route: 061
     Dates: start: 2008, end: 201109
  3. PREVACID [Concomitant]
     Indication: GASTROOESOPHAGEAL REFLUX DISEASE
     Dosage: UNKNOWN
  4. MICARDIS [Concomitant]
     Indication: HYPERTENSION
     Dosage: UNKNOWN
  5. PERCOCET [Concomitant]
     Indication: BACK PAIN
     Dosage: UNKNOWN
  6. FANTANYL [Concomitant]
     Indication: BACK PAIN
     Dosage: IN PAIN PUMP
  7. BACLOFEN [Concomitant]
     Indication: NEURALGIA
     Dosage: UNKNOWN
  8. GRALISE [Concomitant]
     Indication: NEURALGIA
     Dosage: UNKNOWN
  9. COLESTIPOL [Concomitant]
     Indication: PRODUCT USED FOR UNKNOWN INDICATION
     Dosage: UNKNOWN

REACTIONS (10)
  - Intervertebral disc degeneration [Not Recovered/Not Resolved]
  - Pain [Unknown]
  - Spinal disorder [Not Recovered/Not Resolved]
  - Fall [Recovered/Resolved]
  - Foot fracture [Recovered/Resolved]
  - Foot fracture [Recovered/Resolved]
  - Fall [Recovered/Resolved]
  - Foot fracture [Not Recovered/Not Resolved]
  - Impaired healing [Not Recovered/Not Resolved]
  - Osteoporosis [Not Recovered/Not Resolved]
